FAERS Safety Report 23708479 (Version 1)
Quarter: 2024Q2

REPORT INFORMATION
  Report Type: Spontaneous
  Country: US (occurrence: US)
  Receive Date: 20240404
  Receipt Date: 20240404
  Transmission Date: 20240716
  Serious: Yes (Hospitalization)
  Sender: FDA-Public Use
  Company Number: US-Calliditas-2024CAL00520

PATIENT
  Age: 62 Year
  Sex: Female
  Weight: 79 kg

DRUGS (1)
  1. TARPEYO [Suspect]
     Active Substance: BUDESONIDE
     Indication: Proteinuria
     Route: 048
     Dates: start: 20240221

REACTIONS (2)
  - Off label use [Unknown]
  - Investigation abnormal [Unknown]
